FAERS Safety Report 4980977-6 (Version None)
Quarter: 2006Q2

REPORT INFORMATION
  Report Type: 
  Country: None (occurrence: None)
  Receive Date: 20060424
  Receipt Date: 20060420
  Transmission Date: 20061013
  Serious: Yes (Death, Hospitalization)
  Sender: FDA-Public Use
  Company Number: FR-SANOFI-SYNTHELABO-F01200601082

PATIENT
  Sex: Female
  Weight: 52 kg

DRUGS (4)
  1. ELOXATIN [Suspect]
     Indication: OVARIAN CANCER
     Route: 033
     Dates: start: 20031006, end: 20031006
  2. CAMPTOSAR [Suspect]
     Route: 033
     Dates: start: 20031006, end: 20031006
  3. FLUOROURACIL [Suspect]
     Route: 041
     Dates: start: 20031006, end: 20031006
  4. FOLINIC ACID [Suspect]
     Route: 041
     Dates: start: 20031006, end: 20031006

REACTIONS (11)
  - ACUTE ABDOMEN [None]
  - APLASIA [None]
  - ENCEPHALOPATHY [None]
  - HAEMODYNAMIC INSTABILITY [None]
  - HYPOPNOEA [None]
  - INTESTINAL ISCHAEMIA [None]
  - MESENTERIC ARTERY EMBOLISM [None]
  - MESENTERIC ARTERY STENOSIS [None]
  - MULTI-ORGAN FAILURE [None]
  - NEUTROPENIA [None]
  - THROMBOCYTOPENIA [None]
